FAERS Safety Report 23713345 (Version 1)
Quarter: 2024Q2

REPORT INFORMATION
  Report Type: Spontaneous
  Country: US (occurrence: US)
  Receive Date: 20240405
  Receipt Date: 20240405
  Transmission Date: 20240715
  Serious: Yes (Other)
  Sender: FDA-Public Use
  Company Number: US-PFIZER INC-PV202400044427

PATIENT

DRUGS (1)
  1. HYDROCORTISONE [Suspect]
     Active Substance: HYDROCORTISONE
     Dosage: 10 MG

REACTIONS (6)
  - Adrenal insufficiency [Unknown]
  - Therapeutic response changed [Unknown]
  - Product substitution issue [Unknown]
  - Abdominal discomfort [Unknown]
  - Drug intolerance [Unknown]
  - Thyroid function test abnormal [Unknown]
